FAERS Safety Report 4439849-8 (Version None)
Quarter: 2004Q3

REPORT INFORMATION
  Report Type: 
  Country: None (occurrence: None)
  Receive Date: 20040902
  Receipt Date: 20040804
  Transmission Date: 20050211
  Serious: Yes (Hospitalization)
  Sender: FDA-Public Use
  Company Number: FR-ROCHE-376464

PATIENT
  Age: 73 Year
  Sex: Female

DRUGS (6)
  1. LOXEN [Suspect]
     Indication: DRUG USE FOR UNKNOWN INDICATION
     Route: 048
  2. RECORMON [Suspect]
     Route: 065
  3. DI ANTALVIC [Suspect]
     Indication: ARTERIOVENOUS FISTULA SITE COMPLICATION
     Route: 048
     Dates: start: 20021031
  4. PYOSTACINE [Suspect]
     Indication: ARTERIOVENOUS FISTULA SITE COMPLICATION
     Route: 048
     Dates: start: 20021031
  5. LASIX [Suspect]
     Indication: DRUG USE FOR UNKNOWN INDICATION
     Route: 048
  6. TAHOR [Suspect]
     Indication: DRUG USE FOR UNKNOWN INDICATION
     Route: 048

REACTIONS (3)
  - DERMATITIS BULLOUS [None]
  - ECCHYMOSIS [None]
  - PRURITUS [None]
